FAERS Safety Report 5109695-0 (Version None)
Quarter: 2006Q3

REPORT INFORMATION
  Report Type: 
  Country: None (occurrence: None)
  Receive Date: 20060918
  Receipt Date: 20060905
  Transmission Date: 20061208
  Serious: Yes (Other)
  Sender: FDA-Public Use
  Company Number: 430020M06DEU

PATIENT
  Sex: Female

DRUGS (1)
  1. NOVANTRONE [Suspect]
     Dates: start: 20050201

REACTIONS (1)
  - ACUTE MYELOID LEUKAEMIA [None]
